FAERS Safety Report 10781267 (Version 1)
Quarter: 2015Q1

REPORT INFORMATION
  Report Type: Spontaneous
  Country: US (occurrence: None)
  Receive Date: 20150209
  Receipt Date: 20150209
  Transmission Date: 20150721
  Serious: Yes (Death)
  Sender: FDA-Public Use
  Company Number: None

PATIENT
  Age: 65 Year
  Sex: Female

DRUGS (15)
  1. AMPYRA [Suspect]
     Active Substance: DALFAMPRIDINE
     Indication: MULTIPLE SCLEROSIS
     Route: 048
     Dates: start: 201206, end: 201306
  2. LORAZEPAM. [Concomitant]
     Active Substance: LORAZEPAM
  3. DOCUSATE SODIUM. [Concomitant]
     Active Substance: DOCUSATE SODIUM
  4. ONDANSETRON [Concomitant]
     Active Substance: ONDANSETRON
  5. AMPYRA [Concomitant]
     Active Substance: DALFAMPRIDINE
  6. OXYBUTYNIN [Concomitant]
     Active Substance: OXYBUTYNIN
  7. CITALOPRAM [Concomitant]
     Active Substance: CITALOPRAM HYDROBROMIDE
  8. LEVOTHYROXINE [Concomitant]
     Active Substance: LEVOTHYROXINE
  9. RIZATRIPTAN [Concomitant]
     Active Substance: RIZATRIPTAN
  10. MAXALT-MLT [Concomitant]
     Active Substance: RIZATRIPTAN BENZOATE
  11. OMEPRAZOLE. [Concomitant]
     Active Substance: OMEPRAZOLE
  12. SENNA [Concomitant]
     Active Substance: SENNA LEAF\SENNOSIDES\SENNOSIDES A AND B
  13. MELOXICAM. [Concomitant]
     Active Substance: MELOXICAM
  14. FENTANYL. [Concomitant]
     Active Substance: FENTANYL
  15. MORPHINE SULFATE. [Concomitant]
     Active Substance: MORPHINE SULFATE

REACTIONS (1)
  - Non-small cell lung cancer [None]

NARRATIVE: CASE EVENT DATE: 20130607
